FAERS Safety Report 9771989 (Version 12)
Quarter: 2021Q2

REPORT INFORMATION
  Report Type: Other
  Country: CA (occurrence: CA)
  Receive Date: 20131219
  Receipt Date: 20210621
  Transmission Date: 20210717
  Serious: Yes (Other)
  Sender: FDA-Public Use
  Company Number: CA-ROCHE-791355

PATIENT
  Age: 69 Year
  Sex: Male
  Weight: 74.8 kg

DRUGS (22)
  1. METHYLPREDNISOLONE. [Concomitant]
     Active Substance: METHYLPREDNISOLONE
     Indication: PREMEDICATION
     Route: 042
     Dates: start: 20130131
  2. NASONEX [Concomitant]
     Active Substance: MOMETASONE FUROATE
     Dates: end: 2014
  3. GLEEVEC [Concomitant]
     Active Substance: IMATINIB MESYLATE
     Dates: end: 2014
  4. DIPHENHYDRAMINE HCL [Concomitant]
     Active Substance: DIPHENHYDRAMINE HYDROCHLORIDE
     Route: 048
     Dates: start: 20101020
  5. RITUXAN [Suspect]
     Active Substance: RITUXIMAB
     Dosage: DAY 1 INFUSION.
     Route: 042
     Dates: start: 20141127
  6. PANCRELIPASE. [Concomitant]
     Active Substance: PANCRELIPASE
  7. AVODART [Concomitant]
     Active Substance: DUTASTERIDE
     Dates: end: 2014
  8. HYDROXYCHLOROQUINE [Concomitant]
     Active Substance: HYDROXYCHLOROQUINE
  9. MAGNESIUM CITRATE. [Concomitant]
     Active Substance: MAGNESIUM CITRATE
     Route: 048
  10. TAMSULOSIN [Concomitant]
     Active Substance: TAMSULOSIN
  11. ACETAMINOPHEN. [Concomitant]
     Active Substance: ACETAMINOPHEN
     Indication: PREMEDICATION
     Route: 048
     Dates: start: 20130131
  12. METHYLPREDNISOLONE. [Concomitant]
     Active Substance: METHYLPREDNISOLONE
     Route: 042
     Dates: start: 20101020
  13. CALCIUM [Concomitant]
     Active Substance: CALCIUM
  14. RITUXAN [Suspect]
     Active Substance: RITUXIMAB
     Indication: RHEUMATOID ARTHRITIS
     Dosage: LAST DOSE ON:06/JAN/2014?LAST DOSE ON 11/DEC/2014
     Route: 042
     Dates: start: 20101020
  15. PLAQUENIL [Concomitant]
     Active Substance: HYDROXYCHLOROQUINE SULFATE
     Dates: end: 201603
  16. METFORMIN [Concomitant]
     Active Substance: METFORMIN HYDROCHLORIDE
  17. DIPHENHYDRAMINE HCL [Concomitant]
     Active Substance: DIPHENHYDRAMINE HYDROCHLORIDE
     Indication: PREMEDICATION
     Route: 048
     Dates: start: 20130131
  18. ACETAMINOPHEN. [Concomitant]
     Active Substance: ACETAMINOPHEN
     Route: 048
     Dates: start: 20101020
  19. TECTA [Concomitant]
     Active Substance: PANTOPRAZOLE MAGNESIUM
     Dates: end: 2014
  20. OMEGA 3 [Concomitant]
     Active Substance: OMEGA-3 FATTY ACIDS
     Dates: end: 2014
  21. FOLIC ACID. [Concomitant]
     Active Substance: FOLIC ACID
     Dates: end: 2014
  22. PLAQUINOL [Concomitant]
     Active Substance: HYDROXYCHLOROQUINE SULFATE

REACTIONS (15)
  - Skin injury [Unknown]
  - Eye disorder [Unknown]
  - Pain [Unknown]
  - Bursitis [Not Recovered/Not Resolved]
  - Chest discomfort [Recovered/Resolved]
  - Sinus congestion [Recovering/Resolving]
  - Sinusitis [Not Recovered/Not Resolved]
  - Arthralgia [Unknown]
  - Rash [Unknown]
  - Cough [Recovering/Resolving]
  - Bladder mass [Unknown]
  - Rheumatoid arthritis [Unknown]
  - Joint swelling [Unknown]
  - Fatigue [Unknown]
  - Musculoskeletal stiffness [Unknown]

NARRATIVE: CASE EVENT DATE: 201105
